FAERS Safety Report 11289481 (Version 1)
Quarter: 2015Q3

REPORT INFORMATION
  Report Type: Spontaneous
  Country: US (occurrence: US)
  Receive Date: 20150721
  Receipt Date: 20150721
  Transmission Date: 20151125
  Serious: No
  Sender: FDA-Public Use
  Company Number: US-GALDERMA-US14002902

PATIENT
  Age: 66 Year
  Sex: Female

DRUGS (11)
  1. ORACEA [Suspect]
     Active Substance: DOXYCYCLINE
     Indication: ROSACEA
     Route: 048
     Dates: start: 20140728, end: 20140731
  2. CLIMARA [Concomitant]
     Active Substance: ESTRADIOL
     Indication: HYSTERECTOMY
     Dosage: 0.0375 PATCH
     Route: 062
  3. VITAMIN B [Concomitant]
     Active Substance: VITAMIN B
  4. DIOR CAPTURE TOTALE SERUM [Concomitant]
     Route: 061
  5. VITAMIN D [Concomitant]
     Active Substance: CHOLECALCIFEROL
  6. DIOR CAPTURE TOTALE CREME [Concomitant]
     Route: 061
  7. MULTI VITAMIN [Concomitant]
     Active Substance: VITAMINS
  8. VITAMIN C [Concomitant]
     Active Substance: ASCORBIC ACID
  9. ORACEA [Suspect]
     Active Substance: DOXYCYCLINE
     Dosage: 40MG
     Route: 048
     Dates: start: 20140729, end: 20140731
  10. LEVOTHYROXINE. [Concomitant]
     Active Substance: LEVOTHYROXINE
     Indication: THYROID DISORDER
     Dosage: 50 MG
     Route: 048
  11. ORACEA [Suspect]
     Active Substance: DOXYCYCLINE
     Route: 048
     Dates: start: 20140715

REACTIONS (2)
  - Feeling abnormal [Recovered/Resolved]
  - Abdominal distension [Recovered/Resolved]

NARRATIVE: CASE EVENT DATE: 20140729
